FAERS Safety Report 5525838-9 (Version None)
Quarter: 2007Q4

REPORT INFORMATION
  Report Type: 
  Country: None (occurrence: None)
  Receive Date: 20071126
  Receipt Date: 20071112
  Transmission Date: 20080405
  Serious: Yes (Death)
  Sender: FDA-Public Use
  Company Number: JP-GENENTECH-251079

PATIENT
  Sex: Female

DRUGS (11)
  1. BEVACIZUMAB [Suspect]
     Indication: COLON CANCER
     Dosage: 5 MG/KG, UNK
     Route: 042
     Dates: start: 20070913
  2. ISOVORIN [Suspect]
     Indication: COLON CANCER
     Dosage: 90 MG/M2, QD
     Route: 042
  3. FLUOROURACIL [Suspect]
     Indication: COLON CANCER
     Dosage: 360 MG/M2, QD
     Route: 042
     Dates: start: 20070913
  4. OXALIPLATIN [Suspect]
     Indication: COLON CANCER
     Dosage: 43 MG/M2, QD
     Route: 042
     Dates: start: 20070913
  5. MIYA BM [Concomitant]
     Indication: DRUG USE FOR UNKNOWN INDICATION
     Dates: start: 20070913
  6. NORVASC [Concomitant]
     Indication: DRUG USE FOR UNKNOWN INDICATION
  7. URSO 250 [Concomitant]
     Dates: start: 20070913
  8. TATHION [Concomitant]
     Dates: start: 20070913
  9. MAGNESIUM OXIDE [Concomitant]
     Dates: start: 20071013
  10. ALESION [Concomitant]
     Indication: DRUG USE FOR UNKNOWN INDICATION
     Dates: start: 20070913
  11. MEVALOTIN [Concomitant]
     Indication: DRUG USE FOR UNKNOWN INDICATION
     Dates: start: 20070912

REACTIONS (3)
  - HYPERTENSION [None]
  - INTERSTITIAL LUNG DISEASE [None]
  - PLATELET COUNT ABNORMAL [None]
